FAERS Safety Report 9901561 (Version 1)
Quarter: 2014Q1

REPORT INFORMATION
  Report Type: Spontaneous
  Country: US (occurrence: US)
  Receive Date: 20140217
  Receipt Date: 20140217
  Transmission Date: 20141002
  Serious: Yes (Other)
  Sender: FDA-Public Use
  Company Number: US-BAYER-2014-021771

PATIENT
  Sex: Female

DRUGS (8)
  1. BETASERON [Suspect]
     Dosage: 0.25 MG, QOD
     Route: 058
  2. DETROL [Concomitant]
  3. SYNTHROID [Concomitant]
  4. LISINOPRIL [Concomitant]
  5. GABAPENTIN [Concomitant]
  6. CALCIUM [Concomitant]
  7. TYLENOL [PARACETAMOL] [Concomitant]
  8. IBUPROFEN [Concomitant]

REACTIONS (2)
  - Bunion operation [Unknown]
  - Toe operation [Unknown]
